FAERS Safety Report 9726396 (Version 1)
Quarter: 2013Q4

REPORT INFORMATION
  Report Type: Spontaneous
  Country: US (occurrence: None)
  Receive Date: 20131202
  Receipt Date: 20131202
  Transmission Date: 20140711
  Serious: No
  Sender: FDA-Public Use
  Company Number: None

PATIENT
  Age: 66 Year
  Sex: Male
  Weight: 102.06 kg

DRUGS (7)
  1. SIMPONI [Suspect]
     Indication: PSORIATIC ARTHROPATHY
  2. SIMPONI [Suspect]
     Indication: ANKYLOSING SPONDYLITIS
  3. LISINOPRIL [Concomitant]
  4. TERAZOSIN [Concomitant]
  5. OMEPRAZOLE [Concomitant]
  6. ASPIRIN [Concomitant]
  7. RESTASIS EYE DROPS [Concomitant]

REACTIONS (1)
  - Pemphigoid [None]
